FAERS Safety Report 12172797 (Version 1)
Quarter: 2016Q1

REPORT INFORMATION
  Report Type: Other
  Country: LT (occurrence: LT)
  Receive Date: 20160311
  Receipt Date: 20160311
  Transmission Date: 20160526
  Serious: Yes (Life-Threatening, Hospitalization)
  Sender: FDA-Public Use
  Company Number: LT-SYMPLMED PHARMACEUTICALS-2016SYMPLMED000167

PATIENT

DRUGS (1)
  1. PRESTARIUM [Suspect]
     Active Substance: PERINDOPRIL
     Indication: PRODUCT USED FOR UNKNOWN INDICATION
     Dosage: 150 (5 MG) TABLETS, SINGLE
     Route: 048
     Dates: start: 20160217, end: 20160217

REACTIONS (4)
  - Hypotension [Recovered/Resolved]
  - Suicide attempt [Recovered/Resolved]
  - Off label use [Recovered/Resolved]
  - Intentional overdose [Recovered/Resolved]

NARRATIVE: CASE EVENT DATE: 20160217
